FAERS Safety Report 25147682 (Version 1)
Quarter: 2025Q2

REPORT INFORMATION
  Report Type: Spontaneous
  Country: US (occurrence: US)
  Receive Date: 20250402
  Receipt Date: 20250402
  Transmission Date: 20250716
  Serious: Yes (Other)
  Sender: NOVARTIS
  Company Number: US-002147023-NVSC2025US053541

PATIENT
  Age: 51 Year
  Sex: Male

DRUGS (2)
  1. PAZOPANIB [Suspect]
     Active Substance: PAZOPANIB
     Indication: Sarcoma metastatic
     Route: 065
  2. REGORAFENIB [Suspect]
     Active Substance: REGORAFENIB
     Indication: Sarcoma metastatic
     Route: 065

REACTIONS (2)
  - Myocarditis [Recovering/Resolving]
  - Ventricular arrhythmia [Recovered/Resolved]
